FAERS Safety Report 4817671-8 (Version None)
Quarter: 2005Q4

REPORT INFORMATION
  Report Type: 
  Country: None (occurrence: None)
  Receive Date: 20051101
  Receipt Date: 20051101
  Transmission Date: 20060501
  Serious: No
  Sender: FDA-Public Use
  Company Number: None

PATIENT
  Age: 41 Year
  Sex: Male
  Weight: 104 kg

DRUGS (1)
  1. SEROQUEL [Suspect]
     Dosage: 200 MG
     Dates: start: 20051031

REACTIONS (1)
  - PRIAPISM [None]
